FAERS Safety Report 4354644-6 (Version None)
Quarter: 2004Q2

REPORT INFORMATION
  Report Type: 
  Country: None (occurrence: None)
  Receive Date: 20040506
  Receipt Date: 20040506
  Transmission Date: 20050107
  Serious: Yes (Death)
  Sender: FDA-Public Use
  Company Number: None

PATIENT
  Sex: Male
  Weight: 93 kg

DRUGS (4)
  1. LOVENOX [Suspect]
     Indication: AORTIC VALVE REPLACEMENT
     Dosage: 90 MG BID SQ
     Route: 058
     Dates: start: 20031217, end: 20031218
  2. LOVENOX [Suspect]
     Indication: ATRIAL FIBRILLATION
     Dosage: 90 MG BID SQ
     Route: 058
     Dates: start: 20031217, end: 20031218
  3. COUMADIN [Suspect]
     Indication: AORTIC VALVE REPLACEMENT
     Dosage: 10 MG ONCE ORAL
     Route: 048
     Dates: start: 20031217, end: 20031218
  4. COUMADIN [Suspect]
     Indication: ATRIAL FIBRILLATION
     Dosage: 10 MG ONCE ORAL
     Route: 048
     Dates: start: 20031217, end: 20031218

REACTIONS (2)
  - CARDIAC ARREST [None]
  - POST PROCEDURAL HAEMATOMA [None]
